FAERS Safety Report 6740025-4 (Version None)
Quarter: 2010Q2

REPORT INFORMATION
  Report Type: 
  Country: None (occurrence: None)
  Receive Date: 20100525
  Receipt Date: 20100512
  Transmission Date: 20101027
  Serious: Yes (Other)
  Sender: FDA-Public Use
  Company Number: PHHY2010DE31843

PATIENT
  Sex: Female

DRUGS (2)
  1. ZOMETA [Suspect]
     Dosage: UNK
     Dates: start: 20060301, end: 20080201
  2. ACLASTA [Suspect]
     Dosage: UNK
     Route: 042
     Dates: start: 20091001, end: 20091001

REACTIONS (1)
  - OSTEITIS [None]
